FAERS Safety Report 6598071-X (Version None)
Quarter: 2010Q1

REPORT INFORMATION
  Report Type: 
  Country: None (occurrence: None)
  Receive Date: 20100216
  Receipt Date: 20100204
  Transmission Date: 20100710
  Serious: Yes (Hospitalization)
  Sender: FDA-Public Use
  Company Number: 95094

PATIENT
  Age: 26 Year
  Sex: Female

DRUGS (1)
  1. VALPROATE SODIUM [Suspect]
     Dosage: 16G

REACTIONS (14)
  - ALANINE AMINOTRANSFERASE INCREASED [None]
  - BLOOD ALBUMIN DECREASED [None]
  - BLOOD LACTIC ACID INCREASED [None]
  - BLOOD POTASSIUM DECREASED [None]
  - BLOOD PRESSURE DIASTOLIC DECREASED [None]
  - BRAIN OEDEMA [None]
  - COMA [None]
  - CONTINUOUS HAEMODIAFILTRATION [None]
  - GRAND MAL CONVULSION [None]
  - HEART RATE INCREASED [None]
  - HYPERAMMONAEMIA [None]
  - MEDICATION ERROR [None]
  - OVERDOSE [None]
  - RESPIRATORY RATE INCREASED [None]
